FAERS Safety Report 6465415-9 (Version None)
Quarter: 2009Q4

REPORT INFORMATION
  Report Type: 
  Country: None (occurrence: None)
  Receive Date: 20091119
  Receipt Date: 20090903
  Transmission Date: 20100525
  Serious: No
  Sender: FDA-Public Use
  Company Number: WAES 0909USA00558

PATIENT
  Age: 70 Year
  Sex: Female
  Weight: 136.0791 kg

DRUGS (4)
  1. JANUVIA [Suspect]
     Indication: DIABETES MELLITUS
     Dosage: 100 MG/DAILY/PO
     Route: 048
     Dates: start: 20080901, end: 20090901
  2. BENICAR [Concomitant]
  3. WELCHOL [Concomitant]
  4. GLIPIZIDE [Concomitant]

REACTIONS (1)
  - WEIGHT INCREASED [None]
